FAERS Safety Report 10016766 (Version 1)
Quarter: 2014Q1

REPORT INFORMATION
  Report Type: Report from Study
  Country: MX (occurrence: MX)
  Receive Date: 20140318
  Receipt Date: 20140318
  Transmission Date: 20141002
  Serious: Yes (Other)
  Sender: FDA-Public Use
  Company Number: PHHY2014MX032208

PATIENT
  Age: 70 Year
  Sex: Male

DRUGS (1)
  1. EXFORGE [Suspect]
     Indication: HYPERTENSION
     Dosage: 0.5 DF (320/50MG) DAILY
     Route: 048
     Dates: start: 20140305

REACTIONS (2)
  - Diabetes mellitus [Unknown]
  - Wrong technique in drug usage process [Not Recovered/Not Resolved]
